FAERS Safety Report 6464340-7 (Version None)
Quarter: 2009Q4

REPORT INFORMATION
  Report Type: 
  Country: None (occurrence: None)
  Receive Date: 20091130
  Receipt Date: 20091130
  Transmission Date: 20100525
  Serious: Yes (Hospitalization)
  Sender: FDA-Public Use
  Company Number: None

PATIENT
  Age: 70 Year
  Sex: Male
  Weight: 80.2 kg

DRUGS (7)
  1. CISPLATIN [Suspect]
     Indication: MESOTHELIOMA MALIGNANT
     Dosage: 140MG IV Q3W
     Route: 042
     Dates: start: 20091111
  2. PEMETREXED [Suspect]
     Indication: MESOTHELIOMA MALIGNANT
     Dosage: 950MG IV Q3W
     Route: 042
     Dates: start: 20091111
  3. SYNTHROID [Concomitant]
  4. CENTRUM [Concomitant]
  5. EMEND [Concomitant]
  6. DECADRON [Concomitant]
  7. ZOFRAN [Concomitant]

REACTIONS (2)
  - HYPOTENSION [None]
  - SYNCOPE [None]
